FAERS Safety Report 12309141 (Version 1)
Quarter: 2016Q2

REPORT INFORMATION
  Report Type: Spontaneous
  Country: US (occurrence: US)
  Receive Date: 20160427
  Receipt Date: 20160427
  Transmission Date: 20160815
  Serious: No
  Sender: FDA-Public Use
  Company Number: US-GLENMARK PHARMACEUTICALS INC, USA.-2015GMK016183

PATIENT
  Age: 68 Year
  Sex: Female

DRUGS (3)
  1. IMIQUIMOD. [Suspect]
     Active Substance: IMIQUIMOD
     Indication: KERATOACANTHOMA
     Dosage: NIGHTLY APPLICATION
     Route: 061
  2. METHOTREXATE [Suspect]
     Active Substance: METHOTREXATE
     Indication: KERATOACANTHOMA
     Dosage: UNK
     Route: 026
  3. METHOTREXATE [Suspect]
     Active Substance: METHOTREXATE
     Dosage: 0.2 TO 0.3 ML OF 12.5 MG/ML
     Route: 051

REACTIONS (5)
  - Application site erythema [Recovered/Resolved]
  - Product use issue [Unknown]
  - Application site scab [Recovered/Resolved]
  - Impetigo [Recovered/Resolved]
  - Application site exfoliation [Recovered/Resolved]
